FAERS Safety Report 6858091-4 (Version None)
Quarter: 2010Q3

REPORT INFORMATION
  Report Type: 
  Country: None (occurrence: None)
  Receive Date: 20100719
  Receipt Date: 20080131
  Transmission Date: 20110219
  Serious: No
  Sender: FDA-Public Use
  Company Number: US-PFIZER INC-2008012402

PATIENT
  Sex: Female
  Weight: 87.3 kg

DRUGS (2)
  1. CHANTIX [Suspect]
     Indication: SMOKING CESSATION THERAPY
     Dates: start: 20070801
  2. PREVACID [Concomitant]

REACTIONS (4)
  - DEPRESSION [None]
  - IMMUNE SYSTEM DISORDER [None]
  - INFLUENZA [None]
  - VOMITING [None]
